FAERS Safety Report 7043952-6 (Version None)
Quarter: 2010Q4

REPORT INFORMATION
  Report Type: 
  Country: None (occurrence: None)
  Receive Date: 20101008
  Receipt Date: 20101008
  Transmission Date: 20110411
  Serious: Yes (Death)
  Sender: FDA-Public Use
  Company Number: None

PATIENT
  Age: 57 Year
  Sex: Male
  Weight: 120.2032 kg

DRUGS (1)
  1. AMIODARONE HCL [Suspect]
     Indication: ATRIAL FIBRILLATION
     Dosage: 200 MG 1 PER DAY ORAL
     Route: 048
     Dates: start: 20100304, end: 20100704

REACTIONS (2)
  - DYSPNOEA [None]
  - PULMONARY TOXICITY [None]
